FAERS Safety Report 6385795-2 (Version None)
Quarter: 2009Q4

REPORT INFORMATION
  Report Type: 
  Country: None (occurrence: None)
  Receive Date: 20091002
  Receipt Date: 20080925
  Transmission Date: 20100525
  Serious: No
  Sender: FDA-Public Use
  Company Number: US-ASTRAZENECA-2008UW20442

PATIENT
  Age: 60 Year
  Sex: Female

DRUGS (6)
  1. ARIMIDEX [Suspect]
     Route: 048
     Dates: start: 20080501
  2. NEXIUM [Suspect]
     Route: 048
  3. ULTRAM [Suspect]
  4. ELAVIL [Suspect]
  5. PATANOL [Suspect]
  6. FLONASE [Suspect]

REACTIONS (7)
  - BACK PAIN [None]
  - DEPRESSION [None]
  - DRUG DOSE OMISSION [None]
  - DRY MOUTH [None]
  - HOT FLUSH [None]
  - HYPERHIDROSIS [None]
  - MYALGIA [None]
